FAERS Safety Report 4875128-2 (Version None)
Quarter: 2006Q1

REPORT INFORMATION
  Report Type: 
  Country: None (occurrence: None)
  Receive Date: 20060104
  Receipt Date: 20051222
  Transmission Date: 20060701
  Serious: Yes (Life-Threatening, Hospitalization, Disabling)
  Sender: FDA-Public Use
  Company Number: 2005RR-01393

PATIENT
  Age: 29 Year
  Sex: Female

DRUGS (4)
  1. CLARITHROMYCIN [Suspect]
     Indication: TONSILLITIS
  2. CONTRACEPTIVE PILL [Concomitant]
  3. DOLIPRANE 500 [Concomitant]
  4. VECTRINE [Concomitant]

REACTIONS (4)
  - KERATITIS [None]
  - PNEUMONIA [None]
  - STAPHYLOCOCCAL INFECTION [None]
  - TOXIC EPIDERMAL NECROLYSIS [None]
